FAERS Safety Report 10108241 (Version 1)
Quarter: 2014Q2

REPORT INFORMATION
  Report Type: Spontaneous
  Country: US (occurrence: US)
  Receive Date: 20140425
  Receipt Date: 20140425
  Transmission Date: 20141212
  Serious: Yes (Other)
  Sender: FDA-Public Use
  Company Number: US-AMGEN INC.-USASP2014028861

PATIENT
  Age: 64 Year
  Sex: Male

DRUGS (3)
  1. ENBREL [Suspect]
     Indication: RHEUMATOID ARTHRITIS
     Dosage: 50 MG, QWK
     Route: 065
     Dates: end: 20140410
  2. ENBREL [Suspect]
     Indication: PSORIATIC ARTHROPATHY
  3. ENBREL [Suspect]
     Indication: PSORIASIS

REACTIONS (14)
  - Ear pain [Recovered/Resolved]
  - Ocular hyperaemia [Recovered/Resolved]
  - Sinusitis [Recovered/Resolved]
  - Gastrointestinal infection [Recovered/Resolved]
  - Ear infection [Recovered/Resolved]
  - Weight decreased [Recovered/Resolved]
  - Pupillary disorder [Recovered/Resolved]
  - Seasonal allergy [Not Recovered/Not Resolved]
  - Fatigue [Recovered/Resolved]
  - Anhidrosis [Recovered/Resolved]
  - Sinus disorder [Recovered/Resolved]
  - Eye pain [Recovered/Resolved]
  - Colour blindness acquired [Recovered/Resolved]
  - Hypoacusis [Not Recovered/Not Resolved]
